FAERS Safety Report 6898184-9 (Version None)
Quarter: 2010Q3

REPORT INFORMATION
  Report Type: 
  Country: None (occurrence: None)
  Receive Date: 20100802
  Receipt Date: 20070919
  Transmission Date: 20110219
  Serious: Yes (Other)
  Sender: FDA-Public Use
  Company Number: US-PFIZER INC-2007080515

PATIENT
  Age: 36 Year
  Sex: Female
  Weight: 52.2 kg

DRUGS (3)
  1. LYRICA [Suspect]
     Dates: start: 20070812, end: 20070910
  2. LEVOTHYROXINE SODIUM [Concomitant]
  3. ACETYLSALICYLIC ACID SRT [Concomitant]

REACTIONS (5)
  - GAIT DISTURBANCE [None]
  - HYPOTONIA [None]
  - MUSCULAR WEAKNESS [None]
  - SKIN ATROPHY [None]
  - SKIN WRINKLING [None]
